FAERS Safety Report 21392963 (Version 1)
Quarter: 2022Q3

REPORT INFORMATION
  Report Type: Spontaneous
  Country: US (occurrence: US)
  Receive Date: 20220929
  Receipt Date: 20220929
  Transmission Date: 20221026
  Serious: Yes (Other)
  Sender: FDA-Public Use
  Company Number: US-BAYER-2022A132278

PATIENT
  Age: 74 Year
  Sex: Female

DRUGS (1)
  1. KERENDIA [Suspect]
     Active Substance: FINERENONE
     Dosage: 10 MG
     Dates: start: 20220829, end: 20220829

REACTIONS (2)
  - Hypersomnia [None]
  - Nausea [None]

NARRATIVE: CASE EVENT DATE: 20220829
